FAERS Safety Report 9936920 (Version 1)
Quarter: 2014Q1

REPORT INFORMATION
  Report Type: Spontaneous
  Country: US (occurrence: None)
  Receive Date: 20140115
  Receipt Date: 20140115
  Transmission Date: 20141002
  Serious: Yes (Other)
  Sender: FDA-Public Use
  Company Number: 2013US002632

PATIENT
  Age: 68 Year
  Sex: Male
  Weight: 82 kg

DRUGS (8)
  1. ICLUSIG (PONATINIB) [Suspect]
     Indication: ACUTE LYMPHOCYTIC LEUKAEMIA
     Route: 048
     Dates: start: 20130818, end: 20130829
  2. SPIRONOLACTONE (SPIRONOLACTONE) [Concomitant]
  3. LASIX (FUROSEMIDE) [Concomitant]
  4. PREDNISONE (PREDNISONE) [Concomitant]
  5. CRESTOR (ROSUVASTATIN CALCIUM) [Concomitant]
  6. OXYCODONE (OXYCODONE) [Concomitant]
  7. CARVEDILOL (CARVEDILOL) [Concomitant]
  8. OXYCONTIN (OXYCODONE HYDROCHLORIDE) [Concomitant]

REACTIONS (2)
  - Platelet count decreased [None]
  - White blood cell count decreased [None]
